FAERS Safety Report 5566749-2 (Version None)
Quarter: 2007Q4

REPORT INFORMATION
  Report Type: 
  Country: None (occurrence: None)
  Receive Date: 20071219
  Receipt Date: 20071210
  Transmission Date: 20080405
  Serious: No
  Sender: FDA-Public Use
  Company Number: US-ELI_LILLY_AND_COMPANY-US200712001829

PATIENT
  Age: 35 Year
  Sex: Male

DRUGS (4)
  1. CYMBALTA [Suspect]
     Dates: start: 20050101
  2. ZYPREXA [Suspect]
  3. ZOLOFT [Concomitant]
     Dosage: 50 MG, EACH MORNING
  4. ABILIFY [Concomitant]
     Dosage: 5 MG, EACH EVENING

REACTIONS (19)
  - BLOOD BILIRUBIN INCREASED [None]
  - BLOOD CHOLESTEROL INCREASED [None]
  - BLOOD TRIGLYCERIDES [None]
  - BLOOD TRIGLYCERIDES INCREASED [None]
  - GRANULOCYTE COUNT INCREASED [None]
  - HAEMATOCRIT INCREASED [None]
  - HAEMOGLOBIN INCREASED [None]
  - HIGH DENSITY LIPOPROTEIN DECREASED [None]
  - LABORATORY TEST ABNORMAL [None]
  - LOW DENSITY LIPOPROTEIN INCREASED [None]
  - LYMPHOCYTE COUNT DECREASED [None]
  - LYMPHOCYTE PERCENTAGE DECREASED [None]
  - MONOCYTE COUNT INCREASED [None]
  - MONOCYTE PERCENTAGE INCREASED [None]
  - RASH [None]
  - SEDATION [None]
  - TOTAL CHOLESTEROL/HDL RATIO INCREASED [None]
  - TYPE 2 DIABETES MELLITUS [None]
  - WEIGHT INCREASED [None]
